FAERS Safety Report 6238084-0 (Version None)
Quarter: 2009Q2

REPORT INFORMATION
  Report Type: 
  Country: None (occurrence: None)
  Receive Date: 20090617
  Receipt Date: 20090610
  Transmission Date: 20091009
  Serious: Yes (Other)
  Sender: FDA-Public Use
  Company Number: ADR3112009

PATIENT
  Age: 47 Year
  Sex: Female

DRUGS (14)
  1. SIMVASTATIN [Suspect]
     Indication: CARDIOVASCULAR EVENT PROPHYLAXIS
     Dosage: 40 MG ORAL
     Route: 048
     Dates: start: 20051130, end: 20090212
  2. ALENDRONATE SODIUM [Concomitant]
  3. ASACOL [Concomitant]
  4. CALCICHEW [Concomitant]
  5. CETIRIZINE [Concomitant]
  6. ESOMEPRAZOLE MAGNESIUM [Concomitant]
  7. FOLIC ACID [Concomitant]
  8. MELOXICAN [Concomitant]
  9. MESALAZINE [Concomitant]
  10. PREDNISOLONE [Concomitant]
  11. SALMETEROL [Concomitant]
  12. SALMETROL AND FLUTICASONE [Concomitant]
  13. VENTOLIN [Concomitant]
  14. METHOTREXATE [Concomitant]

REACTIONS (1)
  - SENSORY DISTURBANCE [None]
